FAERS Safety Report 4454542-3 (Version None)
Quarter: 2004Q3

REPORT INFORMATION
  Report Type: 
  Country: None (occurrence: None)
  Receive Date: 20040917
  Receipt Date: 20040917
  Transmission Date: 20050211
  Serious: No
  Sender: FDA-Public Use
  Company Number: None

PATIENT
  Sex: Male
  Weight: 13.42 kg

DRUGS (2)
  1. GAMMAR-P I.V. [Suspect]
     Indication: KAWASAKI'S DISEASE
     Dosage: 28G/560ML 12 H INFUSION INTRAVENOUS
     Route: 042
     Dates: start: 20040824, end: 20040825
  2. ASPIRIN [Concomitant]

REACTIONS (5)
  - BRADYCARDIA [None]
  - CRYING [None]
  - PAIN [None]
  - TREMOR [None]
  - VOMITING [None]
